FAERS Safety Report 16158825 (Version 1)
Quarter: 2019Q2

REPORT INFORMATION
  Report Type: Spontaneous
  Country: BR (occurrence: BR)
  Receive Date: 20190404
  Receipt Date: 20190404
  Transmission Date: 20190711
  Serious: Yes (Other)
  Sender: FDA-Public Use
  Company Number: BR-SA-2019SA072678

PATIENT
  Age: 40 Year
  Sex: Female
  Weight: 70 kg

DRUGS (3)
  1. STILNOX CR [Suspect]
     Active Substance: ZOLPIDEM TARTRATE
     Indication: INSOMNIA
     Dosage: 1 DF, QD
     Route: 048
     Dates: start: 20190311, end: 20190313
  2. ARACELI [Concomitant]
     Indication: CONTRACEPTION
     Dosage: 1 DF, UNK
     Route: 048
     Dates: start: 2015
  3. ESCITALOPRAM OXALATE. [Suspect]
     Active Substance: ESCITALOPRAM OXALATE
     Indication: DEPRESSION
     Dosage: ,HALF TABLET BEFORE SLEEPING
     Route: 048
     Dates: start: 20190311

REACTIONS (7)
  - Dermatitis [Recovered/Resolved]
  - White blood cell count decreased [Unknown]
  - Erythema [Recovered/Resolved]
  - Dengue fever [Unknown]
  - Malaise [Recovered/Resolved]
  - Urticaria [Recovered/Resolved]
  - Drug hypersensitivity [Recovered/Resolved]

NARRATIVE: CASE EVENT DATE: 20190312
